FAERS Safety Report 6555960-X (Version None)
Quarter: 2010Q1

REPORT INFORMATION
  Report Type: 
  Country: None (occurrence: None)
  Receive Date: 20100128
  Receipt Date: 20100124
  Transmission Date: 20100710
  Serious: Yes (Other)
  Sender: FDA-Public Use
  Company Number: GR-ABBOTT-09P-066-0610210-00

PATIENT
  Sex: Male
  Weight: 70 kg

DRUGS (5)
  1. HUMIRA [Suspect]
     Indication: PSORIASIS
     Route: 058
     Dates: start: 20091110
  2. METHOTREXATE [Concomitant]
     Indication: PSORIASIS
     Dates: start: 20090221
  3. CYCLOSPORINE [Concomitant]
     Indication: PSORIASIS
     Dates: start: 20040629
  4. ACITRETIN [Concomitant]
     Indication: PSORIASIS
     Dates: start: 20090601
  5. INFLIXIMAB [Concomitant]
     Indication: PSORIASIS
     Dates: start: 20071009

REACTIONS (4)
  - INJECTION SITE ERYTHEMA [None]
  - INJECTION SITE OEDEMA [None]
  - PRURITUS [None]
  - PSORIASIS [None]
